FAERS Safety Report 9388645 (Version 3)
Quarter: 2014Q2

REPORT INFORMATION
  Report Type: Report from Study
  Country: US (occurrence: US)
  Receive Date: 20130708
  Receipt Date: 20140603
  Transmission Date: 20141212
  Serious: Yes (Hospitalization)
  Sender: FDA-Public Use
  Company Number: US-ACTELION-A-US2013-85270

PATIENT
  Age: 51 Year
  Sex: Female

DRUGS (13)
  1. TRACLEER [Suspect]
     Indication: PULMONARY ARTERIAL HYPERTENSION
     Dosage: 125 MG, BID
     Route: 048
     Dates: start: 2006
  2. TRACLEER [Suspect]
     Dosage: UNK
     Route: 048
     Dates: start: 2006, end: 2006
  3. ADCIRCA [Concomitant]
     Dosage: 40 MG, QPM
  4. PROCARDIA [Concomitant]
     Dosage: 20 MG, TID
     Dates: start: 1993
  5. SINGULAIR [Concomitant]
     Dosage: 10 MG, QD
     Dates: start: 2009
  6. ADVAIR [Concomitant]
     Dosage: 500/50 1 PUFF BID
     Dates: start: 2010
  7. OMEPRAZOLE [Concomitant]
     Dosage: 40 MG, QD
     Dates: start: 2011
  8. PEPCID [Concomitant]
     Dosage: 20 MG, UNK
     Dates: start: 2011
  9. PEPCID [Concomitant]
     Dosage: 40 UNK, UNK
  10. CELEXA [Concomitant]
     Dosage: 20 MG, QD
     Dates: start: 2010
  11. CELEXA [Concomitant]
     Dosage: 40 UNK, UNK
  12. LASIX [Concomitant]
     Dosage: 20 MG, QD, PRN
  13. ALBUTEROL [Concomitant]
     Dosage: 2 PUFF, PRN

REACTIONS (3)
  - Sinusitis [Not Recovered/Not Resolved]
  - Sinus operation [Recovering/Resolving]
  - Oxygen saturation decreased [Unknown]
